FAERS Safety Report 11433780 (Version 1)
Quarter: 2015Q3

REPORT INFORMATION
  Report Type: Spontaneous
  Country: US (occurrence: None)
  Receive Date: 20150828
  Receipt Date: 20150828
  Transmission Date: 20151125
  Serious: Yes (Other)
  Sender: FDA-Public Use
  Company Number: None

PATIENT
  Age: 33 Year
  Sex: Female
  Weight: 68 kg

DRUGS (1)
  1. TEFLARO [Suspect]
     Active Substance: CEFTAROLINE FOSAMIL
     Indication: INFECTION
     Route: 042
     Dates: start: 20150823, end: 20150823

REACTIONS (7)
  - Peripheral swelling [None]
  - Pain [None]
  - Swollen tongue [None]
  - Arthropod bite [None]
  - Face oedema [None]
  - Erythema [None]
  - Pruritus [None]

NARRATIVE: CASE EVENT DATE: 20150823
